FAERS Safety Report 25805123 (Version 2)
Quarter: 2025Q3

REPORT INFORMATION
  Report Type: Spontaneous
  Country: CA (occurrence: CA)
  Receive Date: 20250916
  Receipt Date: 20250917
  Transmission Date: 20251021
  Serious: Yes (Hospitalization, Other)
  Sender: JOHNSON AND JOHNSON
  Company Number: CA-JNJFOC-20250913811

PATIENT
  Age: 34 Year
  Sex: Female

DRUGS (2)
  1. USTEKINUMAB [Suspect]
     Active Substance: USTEKINUMAB
     Indication: Crohn^s disease
     Route: 058
  2. MESALAMINE [Concomitant]
     Active Substance: MESALAMINE
     Indication: Product used for unknown indication
     Route: 048

REACTIONS (6)
  - Constipation [Unknown]
  - Impaired work ability [Unknown]
  - Pancreatitis relapsing [Unknown]
  - Crohn^s disease [Unknown]
  - Product substitution issue [Unknown]
  - Abdominal pain upper [Unknown]
